FAERS Safety Report 14672455 (Version 6)
Quarter: 2018Q2

REPORT INFORMATION
  Report Type: Spontaneous
  Country: US (occurrence: US)
  Receive Date: 20180323
  Receipt Date: 20180524
  Transmission Date: 20180711
  Serious: No
  Sender: FDA-Public Use
  Company Number: US-PFIZER INC-2018093536

PATIENT
  Age: 65 Year
  Sex: Male
  Weight: 86 kg

DRUGS (18)
  1. VITAMIN D [Concomitant]
     Active Substance: CHOLECALCIFEROL
     Dosage: UNK
  2. LANREOTIDE [Concomitant]
     Active Substance: LANREOTIDE
     Dosage: UNK, MONTHLY
  3. SUTENT [Suspect]
     Active Substance: SUNITINIB MALATE
     Indication: METASTATIC CARCINOID TUMOUR
     Dosage: 37.5 MG, CYCLIC (2 WEEKS ON/ 1 WEEK OFF)
     Dates: start: 20180312, end: 20180402
  4. FLOMAX [Concomitant]
     Active Substance: TAMSULOSIN HYDROCHLORIDE
     Dosage: UNK
  5. XARELTO [Concomitant]
     Active Substance: RIVAROXABAN
     Dosage: UNK
     Dates: end: 20180403
  6. NEXIUM [Concomitant]
     Active Substance: ESOMEPRAZOLE MAGNESIUM
     Dosage: UNK
  7. CHONDROITIN GLUCOSAMIN [Concomitant]
     Active Substance: CHONDROITIN SULFATE A\GLUCOSAMINE
     Dosage: UNK
  8. BACLOFEN. [Concomitant]
     Active Substance: BACLOFEN
     Dosage: UNK
  9. AFINITOR [Concomitant]
     Active Substance: EVEROLIMUS
     Dosage: UNK
  10. NORCO [Concomitant]
     Active Substance: ACETAMINOPHEN\HYDROCODONE BITARTRATE
     Dosage: UNK
  11. TRAZODONE [Concomitant]
     Active Substance: TRAZODONE HYDROCHLORIDE
     Dosage: UNK
  12. OCTREOTIDE. [Concomitant]
     Active Substance: OCTREOTIDE
     Dosage: UNK, AS NEEDED (PRN IF NEEDED AT HOME)
  13. COLACE [Concomitant]
     Active Substance: DOCUSATE SODIUM
     Dosage: UNK
  14. DICYCLOMINE [Concomitant]
     Active Substance: DICYCLOMINE HYDROCHLORIDE
     Dosage: UNK
  15. SUTENT [Suspect]
     Active Substance: SUNITINIB MALATE
     Dosage: 37.5 MG, CYCLIC [2 WEEKS ON/1 WEEK OFF]
     Dates: start: 20180426
  16. AMLODIPINE [Concomitant]
     Active Substance: AMLODIPINE BESYLATE
     Dosage: UNK
  17. SINGULAIR [Concomitant]
     Active Substance: MONTELUKAST SODIUM
     Dosage: UNK
  18. BABY ASPIRIN [Concomitant]
     Active Substance: ASPIRIN
     Dosage: UNK, DAILY (LOW DOSE)

REACTIONS (5)
  - Blood urine present [Recovering/Resolving]
  - Product use in unapproved indication [Unknown]
  - Asthenia [Recovering/Resolving]
  - Platelet count decreased [Recovering/Resolving]
  - Neoplasm progression [Unknown]

NARRATIVE: CASE EVENT DATE: 2018
